FAERS Safety Report 16959282 (Version 1)
Quarter: 2019Q4

REPORT INFORMATION
  Report Type: Spontaneous
  Country: US (occurrence: US)
  Receive Date: 20191024
  Receipt Date: 20191024
  Transmission Date: 20200122
  Serious: No
  Sender: FDA-Public Use
  Company Number: US-SHIRE-US201935607

PATIENT
  Sex: Female

DRUGS (1)
  1. XIIDRA [Suspect]
     Active Substance: LIFITEGRAST
     Indication: PRODUCT USED FOR UNKNOWN INDICATION
     Dosage: 0.05 PERCENT, 2X/DAY:BID
     Route: 047

REACTIONS (4)
  - Eye irritation [Unknown]
  - Vision blurred [Unknown]
  - Lacrimation increased [Unknown]
  - Dysgeusia [Unknown]
